FAERS Safety Report 5872535-6 (Version None)
Quarter: 2008Q3

REPORT INFORMATION
  Report Type: 
  Country: None (occurrence: None)
  Receive Date: 20080905
  Receipt Date: 20080825
  Transmission Date: 20090109
  Serious: Yes (Death, Other)
  Sender: FDA-Public Use
  Company Number: JP-BAXTER-2008BH009268

PATIENT
  Sex: Male

DRUGS (6)
  1. CYCLOPHOSPHAMIDE [Suspect]
     Indication: PROPHYLAXIS
     Route: 065
  2. CYCLOSPORINE [Suspect]
     Indication: PROPHYLAXIS
     Route: 065
  3. METHOTREXATE GENERIC [Suspect]
     Indication: PROPHYLAXIS
     Route: 065
  4. PREDNISOLONE [Suspect]
     Indication: PROPHYLAXIS
     Route: 065
  5. THYMOGLOBULIN [Suspect]
     Indication: DRUG USE FOR UNKNOWN INDICATION
     Route: 065
  6. RADIATION THERAPY [Suspect]
     Indication: PROPHYLAXIS
     Route: 065

REACTIONS (7)
  - EPSTEIN-BARR VIRUS ASSOCIATED LYMPHOPROLIFERATIVE DISORDER [None]
  - GRAFT VERSUS HOST DISEASE [None]
  - HERPES SIMPLEX [None]
  - INFECTION [None]
  - PNEUMONIA FUNGAL [None]
  - PROGRESSIVE MULTIFOCAL LEUKOENCEPHALOPATHY [None]
  - STAPHYLOCOCCAL SEPSIS [None]
